FAERS Safety Report 9867062 (Version 1)
Quarter: 2014Q1

REPORT INFORMATION
  Report Type: Spontaneous
  Country: US (occurrence: US)
  Receive Date: 20140204
  Receipt Date: 20140204
  Transmission Date: 20141002
  Serious: No
  Sender: FDA-Public Use
  Company Number: US-009507513-1402USA000258

PATIENT
  Age: 35 Year
  Sex: Female
  Weight: 66.21 kg

DRUGS (4)
  1. NEXPLANON [Suspect]
     Indication: CONTRACEPTION
     Dosage: UNK
     Route: 059
     Dates: start: 20131017
  2. SYNTHROID [Concomitant]
  3. WELLBUTRIN [Concomitant]
  4. ZOLOFT [Concomitant]

REACTIONS (3)
  - Device breakage [Not Recovered/Not Resolved]
  - Vaginal haemorrhage [Not Recovered/Not Resolved]
  - Product quality issue [Unknown]
